FAERS Safety Report 4732127-9 (Version None)
Quarter: 2005Q3

REPORT INFORMATION
  Report Type: 
  Country: None (occurrence: None)
  Receive Date: 20050719
  Receipt Date: 19950530
  Transmission Date: 20060218
  Serious: Yes (Hospitalization)
  Sender: FDA-Public Use
  Company Number: KII-1995-0015124

PATIENT
  Sex: Female

DRUGS (1)
  1. MS CONTIN [Suspect]
     Indication: CANCER PAIN
     Dosage: 15 MG, Q12H

REACTIONS (1)
  - CONSTIPATION [None]
